FAERS Safety Report 16791934 (Version 1)
Quarter: 2019Q3

REPORT INFORMATION
  Report Type: Report from Study
  Country: KR (occurrence: KR)
  Receive Date: 20190910
  Receipt Date: 20190910
  Transmission Date: 20191005
  Serious: Yes (Hospitalization)
  Sender: FDA-Public Use
  Company Number: KR-PFIZER INC-2019374662

PATIENT
  Age: 64 Year
  Sex: Female
  Weight: 59.3 kg

DRUGS (3)
  1. SUNITINIB MALATE. [Suspect]
     Active Substance: SUNITINIB MALATE
     Dosage: 37.5 MG, CYCLIC (37.5 MG, 1 D)
     Route: 048
     Dates: start: 20181226, end: 20190224
  2. SUNITINIB MALATE. [Suspect]
     Active Substance: SUNITINIB MALATE
     Indication: RENAL CELL CARCINOMA
     Dosage: 50 MG, CYCLIC (50 MG, 1 D)(ONCE DAILY OF A SCHEDULE OF 4 WEEKS ON TREATMENT FOLLOWED BY 2 WEEKS OFF)
     Route: 048
     Dates: start: 20181113, end: 20181212
  3. SUNITINIB MALATE. [Suspect]
     Active Substance: SUNITINIB MALATE
     Dosage: 25 MG, CYCLIC (25 MG, 1 D)
     Route: 048
     Dates: start: 20190319, end: 20190816

REACTIONS (2)
  - Glomerular filtration rate decreased [Recovering/Resolving]
  - Hypertension [Recovering/Resolving]

NARRATIVE: CASE EVENT DATE: 20190701
